FAERS Safety Report 26120784 (Version 3)
Quarter: 2025Q4

REPORT INFORMATION
  Report Type: Report from Study
  Country: CA (occurrence: CA)
  Receive Date: 20251204
  Receipt Date: 20251216
  Transmission Date: 20260118
  Serious: Yes (Hospitalization)
  Sender: ABBVIE
  Company Number: CA-ABBVIE-6573185

PATIENT
  Age: 58 Year
  Sex: Female

DRUGS (4)
  1. VENCLEXTA [Suspect]
     Active Substance: VENETOCLAX
     Indication: T-cell type acute leukaemia
     Dosage: STRENGTH-100 MG, TAKING FOUR 100 MG TAB ONCE DAILY
     Route: 048
     Dates: start: 20251029, end: 20251121
  2. VENCLEXTA [Suspect]
     Active Substance: VENETOCLAX
     Indication: T-cell type acute leukaemia
     Dosage: STRENGTH-100 MG,?FIRST ADMIN DATE: 02 DEC 2025
     Route: 048
     Dates: start: 202512
  3. AZACITIDINE [Concomitant]
     Active Substance: AZACITIDINE
     Indication: Product used for unknown indication
  4. NABILONE [Suspect]
     Active Substance: NABILONE
     Indication: Product used for unknown indication
     Route: 065

REACTIONS (3)
  - Cannabinoid hyperemesis syndrome [Unknown]
  - Hypophagia [Unknown]
  - Constipation [Unknown]

NARRATIVE: CASE EVENT DATE: 20250101
